FAERS Safety Report 4886861-0 (Version None)
Quarter: 2006Q1

REPORT INFORMATION
  Report Type: 
  Country: None (occurrence: None)
  Receive Date: 20060119
  Receipt Date: 20060106
  Transmission Date: 20060701
  Serious: Yes (Death)
  Sender: FDA-Public Use
  Company Number: 2006005545

PATIENT
  Age: 83 Year
  Sex: Female

DRUGS (1)
  1. VFEND [Suspect]
     Indication: BRONCHOPULMONARY ASPERGILLOSIS
     Dosage: (3 MG/KG), INTRAVENOUS
     Route: 042
     Dates: start: 20051220

REACTIONS (1)
  - CEREBRAL HAEMORRHAGE [None]
